FAERS Safety Report 10382444 (Version 2)
Quarter: 2014Q3

REPORT INFORMATION
  Report Type: Spontaneous
  Country: US (occurrence: US)
  Receive Date: 20140813
  Receipt Date: 20140813
  Transmission Date: 20150326
  Serious: Yes (Death, Other)
  Sender: FDA-Public Use
  Company Number: US-009507513-2009-189155-NL

PATIENT
  Sex: Female
  Weight: 99.7 kg

DRUGS (1)
  1. NUVARING [Suspect]
     Active Substance: ETHINYL ESTRADIOL\ETONOGESTREL
     Indication: CONTRACEPTION
     Dosage: CONTINUING: NO
     Route: 067
     Dates: start: 20061011, end: 20070421

REACTIONS (8)
  - Blood potassium decreased [Unknown]
  - Headache [Unknown]
  - Pulmonary embolism [Fatal]
  - Cardio-respiratory arrest [Not Recovered/Not Resolved]
  - Convulsion [Unknown]
  - Electrolyte imbalance [Not Recovered/Not Resolved]
  - Nasopharyngitis [Unknown]
  - Influenza [Unknown]

NARRATIVE: CASE EVENT DATE: 200703
